FAERS Safety Report 6456802-3 (Version None)
Quarter: 2009Q4

REPORT INFORMATION
  Report Type: 
  Country: None (occurrence: None)
  Receive Date: 20091125
  Receipt Date: 20091117
  Transmission Date: 20100525
  Serious: Yes (Other)
  Sender: FDA-Public Use
  Company Number: US-NOVOPROD-300885

PATIENT
  Sex: Female
  Weight: 99.773 kg

DRUGS (3)
  1. LEVEMIR [Suspect]
     Indication: TYPE 2 DIABETES MELLITUS
     Dosage: UNK
     Route: 058
     Dates: start: 20090801
  2. METFORMIN [Concomitant]
     Indication: TYPE 2 DIABETES MELLITUS
     Dosage: UNK
  3. SPIRONOLACTONE [Concomitant]
     Indication: POLYCYSTIC OVARIES
     Dosage: UNK

REACTIONS (3)
  - CONTUSION [None]
  - FALL [None]
  - INTERVERTEBRAL DISC PROTRUSION [None]
